FAERS Safety Report 10178237 (Version 2)
Quarter: 2014Q2

REPORT INFORMATION
  Report Type: Report from Study
  Country: CA (occurrence: CA)
  Receive Date: 20140519
  Receipt Date: 20140519
  Transmission Date: 20141212
  Serious: Yes (Death, Life-Threatening, Hospitalization)
  Sender: FDA-Public Use
  Company Number: CA-BRISTOL-MYERS SQUIBB COMPANY-19156553

PATIENT
  Age: 72 Year
  Sex: Female

DRUGS (4)
  1. ORENCIA [Suspect]
     Indication: RHEUMATOID ARTHRITIS
     Dosage: 1DF=750-UNITS NOS?INT 29JUL13
     Dates: start: 20090707
  2. METHOTREXATE [Concomitant]
     Route: 058
  3. PREDNISONE [Concomitant]
  4. VITAMIN [Concomitant]

REACTIONS (3)
  - Death [Fatal]
  - Abdominal pain [Not Recovered/Not Resolved]
  - Electrocardiogram abnormal [Unknown]
